FAERS Safety Report 22334094 (Version 2)
Quarter: 2023Q2

REPORT INFORMATION
  Report Type: Spontaneous
  Country: US (occurrence: US)
  Receive Date: 20230517
  Receipt Date: 20230606
  Transmission Date: 20230721
  Serious: No
  Sender: FDA-Public Use
  Company Number: US-SA-SAC20230512000303

PATIENT
  Age: 32 Year
  Sex: Male

DRUGS (18)
  1. DUPIXENT [Suspect]
     Active Substance: DUPILUMAB
     Indication: Anaemia
     Dosage: 300 MG, QOW
     Route: 058
     Dates: start: 20171024
  2. DUPIXENT [Suspect]
     Active Substance: DUPILUMAB
     Indication: Dermatitis atopic
  3. ALBUTEROL SULFATE [Concomitant]
     Active Substance: ALBUTEROL SULFATE
  4. AMLODIPINE [Concomitant]
     Active Substance: AMLODIPINE BESYLATE
  5. FLUTICASONE [Concomitant]
     Active Substance: FLUTICASONE
  6. IBUPROFEN [Concomitant]
     Active Substance: IBUPROFEN
  7. IBUPROFEN [Concomitant]
     Active Substance: IBUPROFEN
  8. LOSARTAN POTASSIUM [Concomitant]
     Active Substance: LOSARTAN POTASSIUM
  9. LOSARTAN POTASSIUM [Concomitant]
     Active Substance: LOSARTAN POTASSIUM
  10. MUCINEX [Concomitant]
     Active Substance: GUAIFENESIN
  11. MUCINEX [Concomitant]
     Active Substance: GUAIFENESIN
  12. HYDROCHLOROTHIAZIDE\VALSARTAN [Concomitant]
     Active Substance: HYDROCHLOROTHIAZIDE\VALSARTAN
  13. HYDROCHLOROTHIAZIDE [Concomitant]
     Active Substance: HYDROCHLOROTHIAZIDE
  14. HYDROCHLOROTHIAZIDE [Concomitant]
     Active Substance: HYDROCHLOROTHIAZIDE
  15. MOMETASONE [Concomitant]
     Active Substance: MOMETASONE
  16. PREDNISONE [Concomitant]
     Active Substance: PREDNISONE
  17. HYDROCHLOROTHIAZIDE\VALSARTAN [Concomitant]
     Active Substance: HYDROCHLOROTHIAZIDE\VALSARTAN
  18. HYDROCORT C [Concomitant]

REACTIONS (7)
  - Discomfort [Unknown]
  - Infection [Not Recovered/Not Resolved]
  - Pain [Unknown]
  - Sleep disorder [Not Recovered/Not Resolved]
  - Rash [Unknown]
  - Dermatitis atopic [Not Recovered/Not Resolved]
  - Drug ineffective for unapproved indication [Unknown]

NARRATIVE: CASE EVENT DATE: 20171024
